FAERS Safety Report 8195549 (Version 5)
Quarter: 2013Q2

REPORT INFORMATION
  Report Type: Spontaneous
  Country: US (occurrence: US)
  Receive Date: 20111024
  Receipt Date: 20130417
  Transmission Date: 20140414
  Serious: Yes (Hospitalization, Other)
  Sender: FDA-Public Use
  Company Number: US-ROCHE-1006353

PATIENT
  Sex: Female

DRUGS (3)
  1. ACCUTANE [Suspect]
     Indication: ACNE
     Route: 048
     Dates: start: 200004, end: 200005
  2. ACCUTANE [Suspect]
     Route: 048
     Dates: start: 200006, end: 200105
  3. ACCUTANE [Suspect]
     Route: 048
     Dates: start: 199810, end: 200009

REACTIONS (5)
  - Colitis ulcerative [Unknown]
  - Inflammatory bowel disease [Unknown]
  - Anxiety [Unknown]
  - Emotional disorder [Unknown]
  - Irritable bowel syndrome [Unknown]
